FAERS Safety Report 10345981 (Version 1)
Quarter: 2014Q3

REPORT INFORMATION
  Report Type: Spontaneous
  Country: US (occurrence: US)
  Receive Date: 20140728
  Receipt Date: 20140728
  Transmission Date: 20150326
  Serious: Yes (Other)
  Sender: FDA-Public Use
  Company Number: US-PFIZER INC-2014206836

PATIENT
  Sex: Female

DRUGS (1)
  1. ALDACTONE [Suspect]
     Active Substance: SPIRONOLACTONE
     Dosage: 12.5 MG, ALTERNATE DAY(25MG TAB SPLIT IN HALF)

REACTIONS (4)
  - Aphagia [Unknown]
  - Pollakiuria [Unknown]
  - Amnesia [Unknown]
  - Deafness [Unknown]
